FAERS Safety Report 6531994-6 (Version None)
Quarter: 2010Q1

REPORT INFORMATION
  Report Type: 
  Country: None (occurrence: None)
  Receive Date: 20100108
  Receipt Date: 20090514
  Transmission Date: 20100710
  Serious: Yes (Death)
  Sender: FDA-Public Use
  Company Number: JP-PFIZER INC-2009189463

PATIENT
  Age: 87 Year
  Sex: Female
  Weight: 48 kg

DRUGS (22)
  1. SILDENAFIL CITRATE [Suspect]
     Dosage: UNK
     Route: 048
     Dates: start: 20090203, end: 20090223
  2. TRACLEER [Concomitant]
     Dosage: UNK
     Route: 048
     Dates: start: 20080214
  3. TAKEPRON [Concomitant]
     Dosage: UNK
     Route: 048
  4. ASPIRIN [Concomitant]
     Dosage: UNK
     Route: 048
  5. DIOVAN [Concomitant]
     Dosage: UNK
     Route: 048
  6. LASIX [Concomitant]
     Dosage: UNK
     Route: 048
     Dates: start: 20081114, end: 20090207
  7. MYSLEE [Concomitant]
     Dosage: UNK
     Route: 048
     Dates: start: 20081113
  8. MAGNESIUM OXIDE HEAVY [Concomitant]
     Dosage: UNK
     Route: 048
     Dates: start: 20081205
  9. DIHYDROCODEINE PHOSPHATE [Concomitant]
     Dosage: UNK
     Route: 048
     Dates: start: 20081219
  10. REPLAS 3 [Concomitant]
     Dosage: UNK
     Route: 042
     Dates: start: 20090202, end: 20090208
  11. LACTEC [Concomitant]
     Dosage: UNK
     Route: 042
     Dates: start: 20090207, end: 20090209
  12. DIGILANOGEN C [Concomitant]
     Dosage: UNK
     Route: 042
     Dates: start: 20090209, end: 20090216
  13. CATABON [Concomitant]
     Dosage: UNK
     Route: 042
  14. HEPARIN [Concomitant]
     Dosage: UNK
     Route: 042
     Dates: start: 20090210, end: 20090213
  15. GLUCOSE [Concomitant]
     Dosage: UNK
     Route: 042
     Dates: start: 20090214
  16. DAI MEDINE [Concomitant]
     Dosage: UNK
     Route: 042
     Dates: start: 20090214
  17. CONCLYTE-NA [Concomitant]
     Dosage: UNK
     Route: 042
     Dates: start: 20090214
  18. HANP [Concomitant]
     Dosage: UNK
     Route: 042
     Dates: start: 20090214, end: 20090219
  19. DOBUTREX [Concomitant]
     Dosage: UNK
     Route: 042
     Dates: start: 20090217, end: 20090222
  20. VENTOLIN [Concomitant]
     Dosage: UNK
     Route: 055
     Dates: start: 20090220
  21. ACETYLCYSTEINE [Concomitant]
     Dosage: UNK
     Route: 055
     Dates: start: 20081024
  22. MUCODYNE [Concomitant]
     Dosage: UNK
     Route: 048
     Dates: start: 20090109

REACTIONS (1)
  - RENAL IMPAIRMENT [None]
